FAERS Safety Report 20055790 (Version 1)
Quarter: 2021Q4

REPORT INFORMATION
  Report Type: Report from Study
  Country: TW (occurrence: TW)
  Receive Date: 20211111
  Receipt Date: 20211111
  Transmission Date: 20220303
  Serious: Yes (Death, Other)
  Sender: FDA-Public Use
  Company Number: TW-BRISTOL-MYERS SQUIBB COMPANY-BMS-2021-117576

PATIENT
  Age: 77 Year
  Sex: Female
  Weight: 63 kg

DRUGS (1)
  1. ABATACEPT [Suspect]
     Active Substance: ABATACEPT
     Indication: Rheumatoid arthritis
     Dosage: 500 MILLIGRAM, QMO
     Route: 042
     Dates: start: 20210603, end: 20211104

REACTIONS (12)
  - Septic shock [Fatal]
  - Convulsions local [Unknown]
  - Respiratory distress [Unknown]
  - Coma [Unknown]
  - Chest discomfort [Unknown]
  - Vomiting [Unknown]
  - Abdominal distension [Unknown]
  - Pyrexia [Unknown]
  - Dyspnoea [Unknown]
  - Hypotension [Unknown]
  - Metabolic acidosis [Unknown]
  - Cyanosis [Unknown]

NARRATIVE: CASE EVENT DATE: 20211021
